FAERS Safety Report 18627318 (Version 1)
Quarter: 2020Q4

REPORT INFORMATION
  Report Type: Spontaneous
  Country: PL (occurrence: PL)
  Receive Date: 20201217
  Receipt Date: 20201217
  Transmission Date: 20210114
  Serious: Yes (Other)
  Sender: FDA-Public Use
  Company Number: NVSC2020PL328956

PATIENT
  Age: 68 Year
  Sex: Female

DRUGS (1)
  1. TASIGNA [Suspect]
     Active Substance: NILOTINIB
     Indication: CHRONIC MYELOID LEUKAEMIA
     Dosage: 400 MG, BID (2X400MG)
     Route: 065
     Dates: start: 201304

REACTIONS (3)
  - Bone marrow reticulin fibrosis [Unknown]
  - Eosinophilia [Unknown]
  - Basophilia [Unknown]
